FAERS Safety Report 8107567-0 (Version None)
Quarter: 2012Q1

REPORT INFORMATION
  Report Type: 
  Country: None (occurrence: None)
  Receive Date: 20120202
  Receipt Date: 20120130
  Transmission Date: 20120608
  Serious: Yes (Hospitalization, Other)
  Sender: FDA-Public Use
  Company Number: US-SANOFI-AVENTIS-2012SA006742

PATIENT
  Age: 59 Year
  Sex: Female

DRUGS (2)
  1. SOLOSTAR [Suspect]
     Dates: start: 20100101
  2. LANTUS [Suspect]
     Dosage: DOSE:56 UNIT(S)
     Route: 058
     Dates: start: 20100101

REACTIONS (3)
  - LOCALISED INFECTION [None]
  - TOE AMPUTATION [None]
  - VISUAL IMPAIRMENT [None]
